FAERS Safety Report 6466391-5 (Version None)
Quarter: 2009Q4

REPORT INFORMATION
  Report Type: 
  Country: None (occurrence: None)
  Receive Date: 20091202
  Receipt Date: 20081228
  Transmission Date: 20100525
  Serious: Yes (Other)
  Sender: FDA-Public Use
  Company Number: PHEH2008US11678

PATIENT
  Sex: Female

DRUGS (1)
  1. MIACALCIN [Suspect]

REACTIONS (6)
  - ARTHRALGIA [None]
  - COELIAC DISEASE [None]
  - FEELING OF DESPAIR [None]
  - GLUCOSE TOLERANCE IMPAIRED [None]
  - MYALGIA [None]
  - PAIN [None]
